FAERS Safety Report 7416896-5 (Version None)
Quarter: 2011Q2

REPORT INFORMATION
  Report Type: 
  Country: None (occurrence: None)
  Receive Date: 20110406
  Receipt Date: 20110322
  Transmission Date: 20111010
  Serious: Yes (Other)
  Sender: FDA-Public Use
  Company Number: 2011MA002732

PATIENT
  Age: 24 Year
  Sex: Female

DRUGS (1)
  1. CARBAMAZEPINE TABLETS USP, 200 MG (PUREPAC) (CARBAMUSTINE) [Suspect]
     Indication: EPILEPSY
     Dosage: ;PO
     Route: 048
     Dates: start: 19940101

REACTIONS (13)
  - LYMPHOCYTE PERCENTAGE DECREASED [None]
  - APHTHOUS STOMATITIS [None]
  - LEUKOPENIA [None]
  - HYPERGAMMAGLOBULINAEMIA [None]
  - FALL [None]
  - RHEUMATOID FACTOR POSITIVE [None]
  - PROTEIN URINE [None]
  - RED BLOOD CELL SEDIMENTATION RATE INCREASED [None]
  - ANTINUCLEAR ANTIBODY POSITIVE [None]
  - RASH [None]
  - SYSTEMIC LUPUS ERYTHEMATOSUS [None]
  - FATIGUE [None]
  - C-REACTIVE PROTEIN INCREASED [None]
